FAERS Safety Report 12240690 (Version 1)
Quarter: 2016Q2

REPORT INFORMATION
  Report Type: Report from Study
  Country: JP (occurrence: JP)
  Receive Date: 20160406
  Receipt Date: 20160406
  Transmission Date: 20160815
  Serious: Yes (Other)
  Sender: FDA-Public Use
  Company Number: JP-ROCHE-1737207

PATIENT
  Age: 75 Year
  Sex: Male

DRUGS (6)
  1. PERFLUOROPROPANE [Suspect]
     Active Substance: PERFLUTREN
     Indication: POLYPOIDAL CHOROIDAL VASCULOPATHY
  2. ALTEPLASE [Suspect]
     Active Substance: ALTEPLASE
     Indication: POLYPOIDAL CHOROIDAL VASCULOPATHY
  3. RANIBIZUMAB [Suspect]
     Active Substance: RANIBIZUMAB
     Indication: RETINAL HAEMORRHAGE
     Route: 050
  4. RANIBIZUMAB [Suspect]
     Active Substance: RANIBIZUMAB
     Indication: POLYPOIDAL CHOROIDAL VASCULOPATHY
  5. ALTEPLASE [Suspect]
     Active Substance: ALTEPLASE
     Indication: RETINAL HAEMORRHAGE
     Route: 050
  6. PERFLUOROPROPANE [Suspect]
     Active Substance: PERFLUTREN
     Indication: RETINAL HAEMORRHAGE
     Route: 050

REACTIONS (1)
  - Vitreous haemorrhage [Unknown]
